FAERS Safety Report 15920840 (Version 2)
Quarter: 2019Q1

REPORT INFORMATION
  Report Type: Spontaneous
  Country: FR (occurrence: FR)
  Receive Date: 20190205
  Receipt Date: 20190228
  Transmission Date: 20190417
  Serious: Yes (Hospitalization, Other)
  Sender: FDA-Public Use
  Company Number: FR-MYLANLABS-2019M1009372

PATIENT
  Age: 69 Year
  Sex: Female

DRUGS (6)
  1. PAPAVERINE                         /00041502/ [Concomitant]
     Dosage: UNK
  2. SINTROM [Concomitant]
     Active Substance: ACENOCOUMAROL
     Dosage: UNK
  3. RIFAMPICIN [Suspect]
     Active Substance: RIFAMPIN
     Indication: PERITONEAL TUBERCULOSIS
     Dosage: 12 MG/KG, QD
  4. RIFAMPICIN [Suspect]
     Active Substance: RIFAMPIN
     Dosage: 600 MG, QD
  5. ISONIAZID. [Suspect]
     Active Substance: ISONIAZID
     Indication: PRODUCT USED FOR UNKNOWN INDICATION
     Dosage: 300 MILLIGRAM, QD
  6. ISONIAZID. [Suspect]
     Active Substance: ISONIAZID
     Indication: PERITONEAL TUBERCULOSIS
     Dosage: 12 MG/KG, QD  UNK

REACTIONS (6)
  - Jaundice [Unknown]
  - Transaminases increased [Unknown]
  - Hepatitis cholestatic [Unknown]
  - Total bile acids increased [Unknown]
  - Coagulation factor decreased [Unknown]
  - Bilirubin conjugated increased [Unknown]
